FAERS Safety Report 6643785-6 (Version None)
Quarter: 2010Q1

REPORT INFORMATION
  Report Type: 
  Country: None (occurrence: None)
  Receive Date: 20100322
  Receipt Date: 20100311
  Transmission Date: 20100710
  Serious: Yes (Other)
  Sender: FDA-Public Use
  Company Number: JP-JNJFOC-20100208540

PATIENT
  Sex: Male
  Weight: 56 kg

DRUGS (14)
  1. RISPERDAL [Suspect]
     Indication: SCHIZOPHRENIA
     Route: 048
  2. RISPERDAL [Suspect]
     Route: 048
  3. RISPERDAL [Suspect]
     Route: 048
  4. WINTERMIN [Suspect]
     Indication: SCHIZOPHRENIA
     Route: 048
  5. WINTERMIN [Suspect]
     Route: 048
  6. DESYREL [Suspect]
     Indication: DEPRESSIVE SYMPTOM
     Route: 048
  7. DESYREL [Suspect]
     Indication: SCHIZOPHRENIA
     Route: 048
  8. AKINETON [Concomitant]
     Indication: PARKINSONISM
     Route: 048
  9. LORAZEPAM [Concomitant]
     Indication: INSOMNIA
     Route: 048
  10. MAGNESIUM OXIDE [Concomitant]
     Indication: CONSTIPATION
     Route: 048
  11. PROPIVERINE HYDROCHLORIDE [Concomitant]
     Indication: URINARY RETENTION
     Route: 048
  12. SENNOSIDE [Concomitant]
     Indication: CONSTIPATION
     Route: 048
  13. NITRAZEPAM [Concomitant]
     Indication: INSOMNIA
     Route: 048
  14. PROMETHAZINE HCL [Concomitant]
     Indication: PARKINSONISM
     Route: 048

REACTIONS (3)
  - NEUROLEPTIC MALIGNANT SYNDROME [None]
  - PNEUMONIA [None]
  - PSYCHIATRIC SYMPTOM [None]
